FAERS Safety Report 18281730 (Version 1)
Quarter: 2020Q3

REPORT INFORMATION
  Report Type: Spontaneous
  Country: US (occurrence: US)
  Receive Date: 20200916
  Receipt Date: 20200916
  Transmission Date: 20201103
  Serious: No
  Sender: FDA-Public Use
  Company Number: None

PATIENT
  Age: 68 Year
  Sex: Female

DRUGS (11)
  1. VITAMIN D3 [Concomitant]
     Active Substance: CHOLECALCIFEROL
  2. VITAMIN B12 [Concomitant]
     Active Substance: CYANOCOBALAMIN
  3. XGEVA [Concomitant]
     Active Substance: DENOSUMAB
  4. IBRANCE [Suspect]
     Active Substance: PALBOCICLIB
     Indication: BREAST CANCER FEMALE
     Dosage: ROUTE: ORAL (21 DAYS ON, 7OFF)
     Route: 048
     Dates: start: 20191031
  5. IRON [Concomitant]
     Active Substance: IRON
  6. LETROZOLE. [Concomitant]
     Active Substance: LETROZOLE
  7. ASPIRIN. [Concomitant]
     Active Substance: ASPIRIN
  8. VITAMIN E [Concomitant]
     Active Substance: .ALPHA.-TOCOPHEROL
  9. PRENATAL [Concomitant]
     Active Substance: VITAMINS
  10. BRILINTA [Concomitant]
     Active Substance: TICAGRELOR
  11. CALCIUM WITH VITAMIN D [Concomitant]
     Active Substance: CALCIUM\VITAMIN D

REACTIONS (3)
  - Cholelithiasis [None]
  - Alanine aminotransferase increased [None]
  - Anxiety [None]

NARRATIVE: CASE EVENT DATE: 20200916
